FAERS Safety Report 5005544-X (Version None)
Quarter: 2006Q2

REPORT INFORMATION
  Report Type: 
  Country: None (occurrence: None)
  Receive Date: 20060518
  Receipt Date: 20060509
  Transmission Date: 20061013
  Serious: Yes (Death, Hospitalization, Disabling)
  Sender: FDA-Public Use
  Company Number: JP-JNJFOC-20060401530

PATIENT
  Sex: Female

DRUGS (7)
  1. CRAVIT [Suspect]
     Indication: PYREXIA
     Route: 048
     Dates: start: 20060306, end: 20060320
  2. CRAVIT [Suspect]
     Indication: TONSILLITIS
     Route: 048
     Dates: start: 20060306, end: 20060320
  3. GASTER [Concomitant]
     Indication: GASTRITIS
     Route: 048
     Dates: start: 20060302
  4. ALESION [Concomitant]
     Route: 048
  5. SELBEX [Concomitant]
     Route: 048
  6. PREDONIN [Concomitant]
     Route: 048
     Dates: start: 20060223
  7. THYRADIN S [Concomitant]
     Indication: HYPOTHYROIDISM
     Route: 048

REACTIONS (6)
  - CARDIAC FAILURE [None]
  - CONVULSION [None]
  - DEPRESSED LEVEL OF CONSCIOUSNESS [None]
  - HAEMODIALYSIS [None]
  - RENAL FAILURE [None]
  - RHABDOMYOLYSIS [None]
